FAERS Safety Report 9929518 (Version 1)
Quarter: 2014Q1

REPORT INFORMATION
  Report Type: Spontaneous
  Country: ES (occurrence: ES)
  Receive Date: 20140227
  Receipt Date: 20140227
  Transmission Date: 20141002
  Serious: Yes (Other)
  Sender: FDA-Public Use
  Company Number: ES-GLAXOSMITHKLINE-B0972829A

PATIENT
  Age: 75 Year
  Sex: 0

DRUGS (6)
  1. FLUTICASONE/SALMETEROL [Suspect]
     Indication: CHRONIC OBSTRUCTIVE PULMONARY DISEASE
     Route: 055
  2. RITONAVIR [Suspect]
     Indication: HIV INFECTION
     Dosage: 100MG PER DAY
     Route: 065
  3. ATAZANAVIR [Concomitant]
     Indication: HIV INFECTION
     Dosage: 300MG PER DAY
  4. LAMIVUDINE-HIV [Concomitant]
     Indication: HIV INFECTION
  5. TIOTROPIUM BROMIDE [Concomitant]
     Indication: CHRONIC OBSTRUCTIVE PULMONARY DISEASE
  6. SALBUTAMOL [Concomitant]
     Indication: CHRONIC OBSTRUCTIVE PULMONARY DISEASE

REACTIONS (8)
  - Cushing^s syndrome [Unknown]
  - Adrenal insufficiency [Unknown]
  - Drug interaction [Unknown]
  - Fatigue [Unknown]
  - Weight decreased [Unknown]
  - Oedema peripheral [Unknown]
  - Face oedema [Unknown]
  - Oedema [Unknown]
